FAERS Safety Report 9477191 (Version 3)
Quarter: 2015Q1

REPORT INFORMATION
  Report Type: Not Available
  Country: US (occurrence: US)
  Receive Date: 20130826
  Receipt Date: 20150218
  Transmission Date: 20150721
  Serious: No
  Sender: FDA-Public Use
  Company Number: US-AMARIN PHARMA, INC.-2013AMR000042

PATIENT
  Age: 63 Year
  Sex: Male
  Weight: 69.01 kg

DRUGS (7)
  1. FLOMAX [Concomitant]
     Active Substance: TAMSULOSIN HYDROCHLORIDE
     Indication: PROSTATE EXAMINATION ABNORMAL
     Route: 065
  2. GEMFIBROZIL. [Concomitant]
     Active Substance: GEMFIBROZIL
     Route: 065
     Dates: start: 201307
  3. VASCEPA [Suspect]
     Active Substance: ETHYL ICOSAPENTATE
     Dosage: 2 CAPSULES IN AM. 1 CAPSULE IN THE EVENING
     Route: 065
     Dates: start: 20130817
  4. GEMFIBROZIL. [Concomitant]
     Active Substance: GEMFIBROZIL
     Indication: BLOOD TRIGLYCERIDES INCREASED
     Route: 048
  5. ASPIRIN. [Concomitant]
     Active Substance: ASPIRIN
     Indication: PRODUCT USED FOR UNKNOWN INDICATION
     Dosage: BABY ASPIRIN DAILY
     Route: 065
  6. VASCEPA [Suspect]
     Active Substance: ETHYL ICOSAPENTATE
     Indication: BLOOD TRIGLYCERIDES INCREASED
     Dosage: 1 CAPSULE TWICE DAILY
     Route: 065
     Dates: start: 20130725
  7. VASCEPA [Suspect]
     Active Substance: ETHYL ICOSAPENTATE
     Dosage: 2 CAPSULES IN THE MORNING, 1 CAPSULE IN THE EVENING
     Route: 048
     Dates: start: 20130723, end: 20130725

REACTIONS (5)
  - Dizziness [Not Recovered/Not Resolved]
  - Abnormal loss of weight [Not Recovered/Not Resolved]
  - Intentional product misuse [Not Recovered/Not Resolved]
  - Hunger [Not Recovered/Not Resolved]
  - Abdominal distension [Not Recovered/Not Resolved]

NARRATIVE: CASE EVENT DATE: 20130723
